FAERS Safety Report 5620271-3 (Version None)
Quarter: 2008Q1

REPORT INFORMATION
  Report Type: 
  Country: None (occurrence: None)
  Receive Date: 20080208
  Receipt Date: 20080201
  Transmission Date: 20080703
  Serious: Yes (Death, Life-Threatening)
  Sender: FDA-Public Use
  Company Number: D0055998A

PATIENT
  Age: 35 Year
  Sex: Female

DRUGS (12)
  1. ZOVIRAX [Suspect]
     Indication: ANTIVIRAL PROPHYLAXIS
     Route: 042
     Dates: start: 20041110, end: 20050127
  2. CIPRO [Suspect]
     Indication: KIDNEY INFECTION
     Dosage: 250MG TWICE PER DAY
     Route: 048
     Dates: start: 20041110, end: 20050127
  3. TAZOBACTAM [Suspect]
     Indication: PROPHYLAXIS
     Dosage: 4.5G THREE TIMES PER DAY
     Route: 042
     Dates: start: 20041204, end: 20041207
  4. DEXAMETHASONE [Suspect]
     Route: 042
     Dates: start: 20041110, end: 20041130
  5. VANCOMYCIN [Suspect]
     Indication: INFECTION PROPHYLAXIS
     Dosage: 1MG TWICE PER DAY
     Route: 042
     Dates: start: 20041114, end: 20050127
  6. ITRACONAZOL [Suspect]
     Indication: CANDIDIASIS
     Dosage: 200MG TWICE PER DAY
     Route: 042
     Dates: start: 20041206, end: 20041208
  7. ZINACEF [Concomitant]
     Indication: KIDNEY INFECTION
     Dosage: 1.5G THREE TIMES PER DAY
     Route: 042
     Dates: start: 20041111, end: 20041113
  8. CYCLOPHOSPHAMIDE [Concomitant]
     Route: 042
     Dates: start: 20041110, end: 20041113
  9. VINCRISTINE [Concomitant]
     Dosage: 2MG UNKNOWN
     Route: 042
     Dates: start: 20041114, end: 20041114
  10. MERONEM [Concomitant]
     Indication: SEPSIS
     Route: 042
     Dates: start: 20041208
  11. VFEND [Concomitant]
     Indication: CANDIDIASIS
     Route: 042
     Dates: start: 20041209
  12. CANCIDAS [Concomitant]
     Indication: CANDIDIASIS
     Dosage: 50MG PER DAY
     Route: 042
     Dates: start: 20041211, end: 20041211

REACTIONS (13)
  - BLISTER [None]
  - CANDIDIASIS [None]
  - CARDIOVASCULAR INSUFFICIENCY [None]
  - ERYTHEMA [None]
  - LIP EROSION [None]
  - NIKOLSKY'S SIGN [None]
  - ORAL MUCOSA EROSION [None]
  - PAIN OF SKIN [None]
  - PRURITUS [None]
  - RENAL FAILURE ACUTE [None]
  - SEPSIS [None]
  - STEVENS-JOHNSON SYNDROME [None]
  - TOXIC EPIDERMAL NECROLYSIS [None]
